FAERS Safety Report 21502752 (Version 4)
Quarter: 2024Q1

REPORT INFORMATION
  Report Type: Spontaneous
  Country: US (occurrence: US)
  Receive Date: 20221025
  Receipt Date: 20240118
  Transmission Date: 20240410
  Serious: Yes (Other)
  Sender: FDA-Public Use
  Company Number: US-BRISTOL-MYERS SQUIBB COMPANY-2022-123324

PATIENT
  Age: 84 Year
  Sex: Male

DRUGS (3)
  1. REVLIMID [Suspect]
     Active Substance: LENALIDOMIDE
     Indication: Plasma cell myeloma
     Dosage: TAKE 1 CAPSULE (10MG) BY MOUTH EVERY DAY ON DAYS 1-21 THEN 7 DAYS OFF.
     Route: 048
  2. REVLIMID [Suspect]
     Active Substance: LENALIDOMIDE
     Dosage: TAKE 1 CAPSULE BY MOUTH ON DAYS 1-21 FOLLOWED BY 7 DAYS OFF
     Route: 048
  3. REVLIMID [Suspect]
     Active Substance: LENALIDOMIDE
     Dosage: TAKE 1 CAPSULE BY MOUTH EVERY DAY??[TAKE 1 CAPSULE BY MOUTH EVERY DAY FOR 21 DAYS FOLLOWED BY 1 WEEK
     Route: 048
     Dates: start: 20221114, end: 20231010

REACTIONS (1)
  - Diarrhoea [Recovering/Resolving]
